FAERS Safety Report 9716477 (Version 3)
Quarter: 2014Q3

REPORT INFORMATION
  Report Type: Spontaneous
  Country: IT (occurrence: IT)
  Receive Date: 20131127
  Receipt Date: 20140926
  Transmission Date: 20150326
  Serious: Yes (Other)
  Sender: FDA-Public Use
  Company Number: IT-BRISTOL-MYERS SQUIBB COMPANY-19849140

PATIENT
  Age: 59 Year
  Sex: Male
  Weight: 87 kg

DRUGS (1)
  1. ERBITUX [Suspect]
     Active Substance: CETUXIMAB
     Indication: RECTOSIGMOID CANCER
     Dosage: THERAPY FROM 05MAR13- 12SEP13:190DAYS-ONG
     Route: 042
     Dates: start: 20130305

REACTIONS (2)
  - Skin reaction [Recovering/Resolving]
  - Q fever [Recovering/Resolving]

NARRATIVE: CASE EVENT DATE: 20130320
